FAERS Safety Report 15214963 (Version 1)
Quarter: 2018Q3

REPORT INFORMATION
  Report Type: Report from Study
  Country: EG (occurrence: EG)
  Receive Date: 20180730
  Receipt Date: 20180730
  Transmission Date: 20181010
  Serious: Yes (Death, Life-Threatening, Hospitalization, Other)
  Sender: FDA-Public Use
  Company Number: EG-JNJFOC-20180527185

PATIENT
  Age: 49 Year
  Sex: Male
  Weight: 80 kg

DRUGS (14)
  1. DEXAMETHASONE. [Suspect]
     Active Substance: DEXAMETHASONE
     Indication: PLASMA CELL MYELOMA
     Route: 048
     Dates: start: 20170918
  2. DEXAMETHASONE. [Suspect]
     Active Substance: DEXAMETHASONE
     Indication: PLASMA CELL MYELOMA
     Dosage: 4 DAYS ON AND 8 OFF
     Route: 048
     Dates: start: 20160822
  3. VFEND [Concomitant]
     Active Substance: VORICONAZOLE
     Indication: FEBRILE NEUTROPENIA
     Route: 048
  4. FUNGIZONE [Concomitant]
     Active Substance: AMPHOTERICIN B
     Indication: SINUSITIS FUNGAL
     Route: 042
  5. DARATUMUMAB [Suspect]
     Active Substance: DARATUMUMAB
     Indication: PLASMA CELL MYELOMA
     Route: 042
     Dates: start: 20180514, end: 20180514
  6. LENALIDOMIDE [Suspect]
     Active Substance: LENALIDOMIDE
     Indication: PROPHYLAXIS
     Route: 048
     Dates: start: 20160822
  7. KLACID [Concomitant]
     Active Substance: CLARITHROMYCIN
     Route: 048
  8. DAKTARIN [Concomitant]
     Active Substance: MICONAZOLE NITRATE
     Indication: SINUSITIS FUNGAL
     Route: 048
  9. LENALIDOMIDE [Suspect]
     Active Substance: LENALIDOMIDE
     Indication: PLASMA CELL MYELOMA
     Route: 048
     Dates: start: 20160822
  10. LENALIDOMIDE [Suspect]
     Active Substance: LENALIDOMIDE
     Indication: PLASMA CELL MYELOMA
     Route: 048
     Dates: start: 20150715
  11. VFEND [Concomitant]
     Active Substance: VORICONAZOLE
     Indication: FEBRILE NEUTROPENIA
     Route: 042
  12. LENALIDOMIDE [Suspect]
     Active Substance: LENALIDOMIDE
     Indication: PROPHYLAXIS
     Route: 048
     Dates: start: 20150715
  13. TAVANIC [Concomitant]
     Active Substance: LEVOFLOXACIN
     Indication: FEBRILE NEUTROPENIA
     Route: 042
  14. MYCOSTATIN [Concomitant]
     Active Substance: NYSTATIN
     Indication: SINUSITIS FUNGAL
     Route: 048

REACTIONS (24)
  - Dyspnoea at rest [Unknown]
  - Thrombocytopenia [Unknown]
  - Pneumonia bacterial [Not Recovered/Not Resolved]
  - Oliguria [Fatal]
  - Metabolic acidosis [Fatal]
  - Eye swelling [Unknown]
  - Diarrhoea [Unknown]
  - Cardiac arrest [Fatal]
  - Haemorrhage [Unknown]
  - Depressed level of consciousness [Not Recovered/Not Resolved]
  - White blood cell count decreased [Unknown]
  - Peptic ulcer [Unknown]
  - Hypotension [Unknown]
  - Vomiting [Unknown]
  - Mucormycosis [Not Recovered/Not Resolved]
  - Confusional state [Unknown]
  - Candida infection [Not Recovered/Not Resolved]
  - Pyrexia [Unknown]
  - Sinusitis fungal [Not Recovered/Not Resolved]
  - Renal impairment [Not Recovered/Not Resolved]
  - Epistaxis [Unknown]
  - Wheezing [Unknown]
  - Renal impairment [Fatal]
  - Infusion related reaction [Unknown]

NARRATIVE: CASE EVENT DATE: 20180514
